FAERS Safety Report 14929296 (Version 3)
Quarter: 2018Q2

REPORT INFORMATION
  Report Type: Report from Study
  Country: US (occurrence: US)
  Receive Date: 20180523
  Receipt Date: 20180613
  Transmission Date: 20180711
  Serious: No
  Sender: FDA-Public Use
  Company Number: PHEH2018US019997

PATIENT
  Age: 63 Year
  Sex: Female
  Weight: 54.43 kg

DRUGS (2)
  1. GLATOPA [Suspect]
     Active Substance: GLATIRAMER ACETATE
     Dosage: 20 MG, QD, ROTATES INJECTION SITES
     Route: 058
     Dates: start: 20180523
  2. GLATOPA [Suspect]
     Active Substance: GLATIRAMER ACETATE
     Indication: MULTIPLE SCLEROSIS
     Dosage: 20 MG, QD, ROTATES INJECTION SITES
     Route: 058
     Dates: start: 20180419

REACTIONS (9)
  - Urticaria [Not Recovered/Not Resolved]
  - Vascular injury [Not Recovered/Not Resolved]
  - Wrong technique in product usage process [Unknown]
  - Injection site discolouration [Not Recovered/Not Resolved]
  - Injection site bruising [Not Recovered/Not Resolved]
  - Injection site pain [Recovered/Resolved]
  - Confusional state [Unknown]
  - Injection site mass [Not Recovered/Not Resolved]
  - Injection site pain [Unknown]

NARRATIVE: CASE EVENT DATE: 20180502
